FAERS Safety Report 25085472 (Version 1)
Quarter: 2025Q1

REPORT INFORMATION
  Report Type: Report from Study
  Country: FR (occurrence: None)
  Receive Date: 20250317
  Receipt Date: 20250317
  Transmission Date: 20250409
  Serious: Yes (Death, Other)
  Sender: MAIA PHARMACEUTICALS
  Company Number: FR-MAIA Pharmaceuticals, Inc.-MAI202503-000033

PATIENT

DRUGS (4)
  1. BORTEZOMIB [Suspect]
     Active Substance: BORTEZOMIB
     Indication: Blastic plasmacytoid dendritic cell neoplasia
     Route: 058
  2. VENETOCLAX [Concomitant]
     Active Substance: VENETOCLAX
     Indication: Blastic plasmacytoid dendritic cell neoplasia
     Route: 048
  3. METHOTREXATE [Concomitant]
     Active Substance: METHOTREXATE
     Indication: Prophylactic chemotherapy
     Route: 037
  4. CYTARABINE [Concomitant]
     Active Substance: CYTARABINE
     Indication: Prophylactic chemotherapy
     Route: 037

REACTIONS (2)
  - Intestinal infarction [Fatal]
  - Product use in unapproved indication [Unknown]
